FAERS Safety Report 8776726 (Version 1)
Quarter: 2012Q4

REPORT INFORMATION
  Report Type: 
  Country: US (occurrence: US)
  Receive Date: 20120905
  Receipt Date: 20120905
  Transmission Date: 20130627
  Serious: Yes (Hospitalization, Other)
  Sender: FDA-Public Use
  Company Number: US-ELI_LILLY_AND_COMPANY-US201209000124

PATIENT
  Age: 69 Year
  Sex: Female

DRUGS (11)
  1. CYMBALTA [Suspect]
     Indication: DIABETIC NEUROPATHY
     Dosage: 30 mg, tid
  2. CYMBALTA [Suspect]
     Dosage: 30 mg, bid
  3. BYETTA [Concomitant]
     Dosage: 10 mg, bid
  4. CRESTOR [Concomitant]
     Dosage: 10 mg, qd
  5. METOPROLOL [Concomitant]
     Dosage: 25 mg, bid
  6. LEXAPRO [Concomitant]
     Dosage: 15 mg, qd
  7. METFORMIN [Concomitant]
  8. BIOTIN [Concomitant]
     Dosage: 5000 IU, UNK
  9. XALATAN [Concomitant]
  10. CENTRUM [Concomitant]
     Dosage: UNK, bid
  11. CORTICOSTEROIDS [Concomitant]

REACTIONS (6)
  - Hip arthroplasty [Unknown]
  - Femur fracture [Unknown]
  - Fall [Unknown]
  - Arthritis [Unknown]
  - Blood glucose increased [Unknown]
  - Intentional drug misuse [Unknown]
